FAERS Safety Report 4961815-4 (Version None)
Quarter: 2006Q2

REPORT INFORMATION
  Report Type: 
  Country: None (occurrence: None)
  Receive Date: 20060404
  Receipt Date: 20060331
  Transmission Date: 20061013
  Serious: Yes (Other)
  Sender: FDA-Public Use
  Company Number: US-GLAXOSMITHKLINE-A0599940A

PATIENT
  Age: 67 Year
  Sex: Female

DRUGS (19)
  1. ADVAIR DISKUS 100/50 [Suspect]
     Indication: ASTHMA
     Dosage: 1PUFF TWICE PER DAY
     Route: 055
     Dates: start: 20020101
  2. LIPITOR [Suspect]
     Indication: DRUG USE FOR UNKNOWN INDICATION
     Route: 065
     Dates: end: 20060201
  3. BENICAR [Concomitant]
  4. TOPROL-XL [Concomitant]
  5. LASIX [Concomitant]
  6. MAXZIDE [Concomitant]
  7. ALLEGRA [Concomitant]
  8. SINGULAIR [Concomitant]
  9. ZETIA [Concomitant]
     Dates: start: 20060201
  10. MUCINEX [Concomitant]
  11. PHENERGAN HCL [Concomitant]
  12. ASPIRIN [Concomitant]
  13. ULTRACET [Concomitant]
  14. GLUCOSAMINE CHONDROITIN [Concomitant]
  15. MSM [Concomitant]
  16. HYALURONIC ACID [Concomitant]
  17. ALBUTEROL [Concomitant]
  18. MULTIPLE VITAMIN [Concomitant]
  19. NASONEX [Concomitant]

REACTIONS (7)
  - COUGH [None]
  - MEDICATION ERROR [None]
  - MEMORY IMPAIRMENT [None]
  - MUSCLE SPASMS [None]
  - NASOPHARYNGITIS [None]
  - PNEUMONIA [None]
  - TRANSIENT ISCHAEMIC ATTACK [None]
